FAERS Safety Report 6801965-0 (Version None)
Quarter: 2010Q2

REPORT INFORMATION
  Report Type: 
  Country: None (occurrence: None)
  Receive Date: 20100629
  Receipt Date: 20100623
  Transmission Date: 20101027
  Serious: Yes (Life-Threatening, Hospitalization)
  Sender: FDA-Public Use
  Company Number: ES-ABBOTT-10P-144-0653267-00

PATIENT
  Age: 44 Year
  Sex: Male

DRUGS (6)
  1. DEPAKENE [Suspect]
     Indication: CONVULSION
     Route: 048
     Dates: start: 20100317, end: 20100506
  2. LOSARTAN POTASSIUM [Suspect]
     Indication: HYPERTENSION
     Route: 048
     Dates: start: 20070101, end: 20100506
  3. ALPRAZOLAM [Suspect]
     Indication: DRUG USE FOR UNKNOWN INDICATION
     Dates: start: 20070101, end: 20100506
  4. ACFOL [Concomitant]
     Indication: DRUG USE FOR UNKNOWN INDICATION
     Dates: start: 20080101, end: 20100506
  5. ATENOLOL [Concomitant]
     Indication: DRUG USE FOR UNKNOWN INDICATION
     Dates: end: 20100506
  6. ADIRO [Concomitant]
     Indication: DRUG USE FOR UNKNOWN INDICATION
     Dates: end: 20100506

REACTIONS (4)
  - HEPATITIS [None]
  - HYPERKALAEMIA [None]
  - METABOLIC ACIDOSIS [None]
  - METABOLIC ENCEPHALOPATHY [None]
